FAERS Safety Report 17518631 (Version 1)
Quarter: 2020Q1

REPORT INFORMATION
  Report Type: Spontaneous
  Country: NL (occurrence: NL)
  Receive Date: 20200310
  Receipt Date: 20200310
  Transmission Date: 20200409
  Serious: Yes (Other)
  Sender: FDA-Public Use
  Company Number: NL-AMGEN-NLDSP2020036635

PATIENT
  Sex: Female
  Weight: 49 kg

DRUGS (2)
  1. EUTHYROX [Concomitant]
     Active Substance: LEVOTHYROXINE SODIUM
     Dosage: 50 MICROGRAM
     Route: 048
  2. PROLIA [Suspect]
     Active Substance: DENOSUMAB
     Indication: OSTEOPOROSIS
     Dosage: INJECTIEVLOEISTOF, 60 MG/ML (MILLIGRAM PER MILLILITER), 1 X PER 6 MAANDEN, 1 INJECTIE
     Route: 065
     Dates: start: 20150810, end: 20180320

REACTIONS (2)
  - Rhinorrhoea [Not Recovered/Not Resolved]
  - Respiratory tract infection [Not Recovered/Not Resolved]
